FAERS Safety Report 14726912 (Version 1)
Quarter: 2018Q2

REPORT INFORMATION
  Report Type: Spontaneous
  Country: US (occurrence: US)
  Receive Date: 20180406
  Receipt Date: 20180406
  Transmission Date: 20180711
  Serious: No
  Sender: FDA-Public Use
  Company Number: US-BAYER-2018-062266

PATIENT
  Age: 39 Year
  Sex: Female

DRUGS (1)
  1. KYLEENA [Suspect]
     Active Substance: LEVONORGESTREL
     Indication: CONTRACEPTION
     Dosage: 17.5 MCG/24HR, CONT
     Route: 015
     Dates: start: 20180322, end: 20180322

REACTIONS (4)
  - Procedural pain [None]
  - Multiple use of single-use product [None]
  - Uterine cervix stenosis [None]
  - Complication of device insertion [None]

NARRATIVE: CASE EVENT DATE: 20180322
